FAERS Safety Report 8542976-7 (Version None)
Quarter: 2012Q3

REPORT INFORMATION
  Report Type: 
  Country: None (occurrence: None)
  Receive Date: 20120716
  Receipt Date: 20120703
  Transmission Date: 20120928
  Serious: Yes (Hospitalization)
  Sender: FDA-Public Use
  Company Number: 2012MA008457

PATIENT
  Age: 87 Year
  Sex: Male

DRUGS (1)
  1. CITALOPRAM HYDROBROMIDE [Suspect]
     Dosage: 20 MG; QD; PO
     Route: 048
     Dates: start: 20120601

REACTIONS (4)
  - FALL [None]
  - MEDICATION ERROR [None]
  - MALAISE [None]
  - OVERDOSE [None]
